FAERS Safety Report 19178949 (Version 1)
Quarter: 2021Q2

REPORT INFORMATION
  Report Type: Spontaneous
  Country: DE (occurrence: DE)
  Receive Date: 20210426
  Receipt Date: 20210426
  Transmission Date: 20210717
  Serious: Yes (Hospitalization)
  Sender: FDA-Public Use
  Company Number: DE-DRREDDYS-GER/GER/21/0134611

PATIENT
  Age: 64 Year
  Sex: Female

DRUGS (1)
  1. IBUPROFEN. [Suspect]
     Active Substance: IBUPROFEN
     Indication: PAIN
     Route: 048

REACTIONS (3)
  - Liver injury [Unknown]
  - Myelosuppression [Unknown]
  - Pancytopenia [Unknown]

NARRATIVE: CASE EVENT DATE: 20210104
